FAERS Safety Report 5512832-7 (Version None)
Quarter: 2007Q4

REPORT INFORMATION
  Report Type: 
  Country: None (occurrence: None)
  Receive Date: 20071108
  Receipt Date: 20071108
  Transmission Date: 20080405
  Serious: Yes (Disabling)
  Sender: FDA-Public Use
  Company Number: None

PATIENT
  Age: 19 Year
  Sex: Female
  Weight: 56.246 kg

DRUGS (3)
  1. YAZ [Suspect]
     Indication: CONTRACEPTION
     Dosage: 1 PILL FOR 28 DAYS PO
     Route: 048
     Dates: start: 20070901, end: 20071028
  2. YAZ [Suspect]
     Indication: MUSCLE SPASMS
     Dosage: 1 PILL FOR 28 DAYS PO
     Route: 048
     Dates: start: 20070901, end: 20071028
  3. YAZ [Suspect]
     Indication: PREMENSTRUAL SYNDROME
     Dosage: 1 PILL FOR 28 DAYS PO
     Route: 048
     Dates: start: 20070901, end: 20071028

REACTIONS (14)
  - ANOREXIA [None]
  - ANXIETY [None]
  - CONTUSION [None]
  - CRYING [None]
  - DEHYDRATION [None]
  - DEPRESSED MOOD [None]
  - DYSPNOEA [None]
  - FATIGUE [None]
  - FEELING ABNORMAL [None]
  - HEADACHE [None]
  - ILL-DEFINED DISORDER [None]
  - INSOMNIA [None]
  - MUSCLE TIGHTNESS [None]
  - PALPITATIONS [None]
